FAERS Safety Report 6088413-6 (Version None)
Quarter: 2009Q1

REPORT INFORMATION
  Report Type: 
  Country: None (occurrence: None)
  Receive Date: 20090224
  Receipt Date: 20090211
  Transmission Date: 20090719
  Serious: Yes (Other)
  Sender: FDA-Public Use
  Company Number: US-PFIZER INC-2009153748

PATIENT
  Sex: Female
  Weight: 58.05 kg

DRUGS (2)
  1. GEODON [Suspect]
     Indication: SLEEP DISORDER
     Dosage: 160 MG, 1X/DAY
     Route: 048
     Dates: start: 20081117, end: 20090109
  2. PROPRANOLOL [Concomitant]

REACTIONS (8)
  - ABDOMINAL DISCOMFORT [None]
  - ANXIETY [None]
  - DECREASED APPETITE [None]
  - DYSTONIA [None]
  - HOT FLUSH [None]
  - SEDATION [None]
  - STRESS [None]
  - SURGERY [None]
